FAERS Safety Report 5358110-0 (Version None)
Quarter: 2007Q2

REPORT INFORMATION
  Report Type: 
  Country: None (occurrence: None)
  Receive Date: 20070530
  Receipt Date: 20070202
  Transmission Date: 20071010
  Serious: Yes (Other)
  Sender: FDA-Public Use
  Company Number: US200702000458

PATIENT
  Age: 44 Year
  Sex: Female
  Weight: 85 kg

DRUGS (2)
  1. ZYPREXA [Suspect]
     Indication: AUTISM
     Dosage: 5 MG, UNK, ORAL
     Route: 048
     Dates: start: 20050801
  2. DEPAKOTE [Concomitant]

REACTIONS (7)
  - ACTIVITIES OF DAILY LIVING IMPAIRED [None]
  - BREAST ENLARGEMENT [None]
  - DYSPNOEA [None]
  - GAIT DISTURBANCE [None]
  - GENERALISED OEDEMA [None]
  - OEDEMA PERIPHERAL [None]
  - WEIGHT INCREASED [None]
